FAERS Safety Report 4685880-7 (Version None)
Quarter: 2005Q2

REPORT INFORMATION
  Report Type: 
  Country: None (occurrence: None)
  Receive Date: 20050606
  Receipt Date: 20050606
  Transmission Date: 20051028
  Serious: Yes (Death)
  Sender: FDA-Public Use
  Company Number: None

PATIENT
  Sex: Female
  Weight: 67.2 kg

DRUGS (7)
  1. FLUDARABINE PHOSPHATE [Suspect]
     Indication: BREAST CANCER
     Dosage: 30 MG/M2 IV OVER 30 MINUTES QD ON DAYS 1-4
     Route: 042
     Dates: start: 20011222
  2. CYCLOPHOSPHAMIDE [Suspect]
     Indication: BREAST CANCER
     Dosage: 600 MG/M2 IV OVER 2 HRS QD ON DAYS 1-4
     Route: 042
  3. FILGRASTIN [Suspect]
     Indication: BREAST CANCER
     Dosage: 10 MCG/KG SC QD STARTING ON DAY 5 UNTIL ANC } 1000/MCL
     Route: 058
  4. FLUDARABINE PHOSPHATE [Suspect]
     Indication: BREAST CANCER
     Dosage: 30 MG/M2 IV INFUSION OVER 30 MINUTES QD ON DAYS (-6), (-5), (-4), (-3) PRIOR TO TRANSPLANT
     Route: 042
  5. CYCLOPHOSPHAMIDE [Suspect]
     Indication: BREAST CANCER
     Dosage: 1200 MG/M2 OVER 2 HOURS QD ON DAYS (-6), (-5), (-4), (-3) PRIOR TO TRANSPLANT
     Route: 042
  6. MESNA [Suspect]
     Indication: BREAST CANCER
     Dosage: 150 MG/M2 IV OVER 3 H R LOADING DOSE STARTING 1 HR BEFORE CYCLOPHOSPHAMIDE ON DAY (-6) FOLLOWED BY 1
     Route: 042
  7. STEM CELLS [Suspect]
     Indication: BREAST CANCER
     Dosage: TRANSPANTATION ON DAY 0

REACTIONS (9)
  - DYSPNOEA [None]
  - LUNG INFILTRATION [None]
  - MALIGNANT NEOPLASM PROGRESSION [None]
  - MALIGNANT PLEURAL EFFUSION [None]
  - METASTASES TO LYMPH NODES [None]
  - PERFORMANCE STATUS DECREASED [None]
  - RESPIRATORY DISTRESS [None]
  - RESPIRATORY FAILURE [None]
  - WHEEZING [None]
